FAERS Safety Report 7183951-7 (Version None)
Quarter: 2010Q4

REPORT INFORMATION
  Report Type: 
  Country: None (occurrence: None)
  Receive Date: 20101222
  Receipt Date: 20101213
  Transmission Date: 20110411
  Serious: Yes (Death, Hospitalization, Other)
  Sender: FDA-Public Use
  Company Number: BR-ROCHE-748050

PATIENT
  Sex: Female
  Weight: 27 kg

DRUGS (2)
  1. ROACUTAN [Suspect]
     Indication: NEUROBLASTOMA
     Dosage: STOP DATE: 2010
     Route: 048
     Dates: start: 20101005
  2. ROACUTAN [Suspect]
     Route: 048

REACTIONS (6)
  - CONVULSION [None]
  - DELIRIUM [None]
  - DEPRESSION [None]
  - INTRACRANIAL PRESSURE INCREASED [None]
  - PAIN [None]
  - SPINAL MYELOGRAM ABNORMAL [None]
